FAERS Safety Report 8161491-6 (Version None)
Quarter: 2012Q1

REPORT INFORMATION
  Report Type: 
  Country: None (occurrence: None)
  Receive Date: 20120103
  Receipt Date: 20111003
  Transmission Date: 20120608
  Serious: No
  Sender: FDA-Public Use
  Company Number: AE-2011-001967

PATIENT
  Age: 34 Year
  Sex: Male
  Weight: 70.7611 kg

DRUGS (3)
  1. PEGASYS [Concomitant]
  2. INCIVEK [Suspect]
     Dosage: 2250 MG (750 MG, Q 7-9HR)
     Dates: start: 20110818
  3. RIBAVIRIN [Concomitant]

REACTIONS (1)
  - COUGH [None]
